FAERS Safety Report 5354138-5 (Version None)
Quarter: 2007Q2

REPORT INFORMATION
  Report Type: 
  Country: None (occurrence: None)
  Receive Date: 20070612
  Receipt Date: 20070608
  Transmission Date: 20071010
  Serious: Yes (Life-Threatening, Other)
  Sender: FDA-Public Use
  Company Number: DE-BRISTOL-MYERS SQUIBB COMPANY-13792429

PATIENT
  Age: 71 Year
  Sex: Female
  Weight: 69 kg

DRUGS (1)
  1. SPRYCEL [Suspect]
     Indication: CHRONIC MYELOID LEUKAEMIA
     Route: 048
     Dates: start: 20061224, end: 20061231

REACTIONS (6)
  - ANAEMIA [None]
  - EPIDERMOLYSIS [None]
  - FLUID RETENTION [None]
  - PANCYTOPENIA [None]
  - RENAL PAIN [None]
  - THROMBOCYTOPENIA [None]
